FAERS Safety Report 5306888-4 (Version None)
Quarter: 2007Q2

REPORT INFORMATION
  Report Type: 
  Country: None (occurrence: None)
  Receive Date: 20070425
  Receipt Date: 20070413
  Transmission Date: 20071010
  Serious: Yes (Hospitalization)
  Sender: FDA-Public Use
  Company Number: PHHO2007NZ02990

PATIENT
  Age: 75 Year
  Sex: Female
  Weight: 81 kg

DRUGS (6)
  1. TAMOXIFEN CITRATE [Suspect]
     Dosage: DOUBLE BLIND
     Route: 048
     Dates: start: 20020807
  2. METOPROLOL SUCCINATE [Concomitant]
  3. GLICLAZIDE [Concomitant]
  4. FRUSEMIDE [Concomitant]
     Dates: end: 20070208
  5. LISINOPRIL [Concomitant]
  6. OMEPRAZOLE [Concomitant]

REACTIONS (4)
  - ARTERIAL STENOSIS [None]
  - CHEST PAIN [None]
  - DYSPEPSIA [None]
  - VASCULAR CALCIFICATION [None]
